FAERS Safety Report 16325973 (Version 2)
Quarter: 2019Q2

REPORT INFORMATION
  Report Type: Spontaneous
  Country: US (occurrence: US)
  Receive Date: 20190517
  Receipt Date: 20190521
  Transmission Date: 20190711
  Serious: Yes (Hospitalization)
  Sender: FDA-Public Use
  Company Number: US-GILEAD-2019-0408037

PATIENT
  Age: 19 Year
  Sex: Male

DRUGS (2)
  1. CAYSTON [Suspect]
     Active Substance: AZTREONAM
     Indication: CYSTIC FIBROSIS
     Dosage: 75 MG
     Route: 055
  2. CAYSTON [Suspect]
     Active Substance: AZTREONAM
     Indication: BRONCHITIS CHRONIC

REACTIONS (3)
  - Intentional dose omission [Unknown]
  - Impaired self-care [Unknown]
  - Incorrect product formulation administered [Recovered/Resolved]
